FAERS Safety Report 9650525 (Version 1)
Quarter: 2013Q4

REPORT INFORMATION
  Report Type: Report from Study
  Country: IT (occurrence: IT)
  Receive Date: 20131029
  Receipt Date: 20131029
  Transmission Date: 20140711
  Serious: Yes (Other)
  Sender: FDA-Public Use
  Company Number: IT-ROCHE-1294736

PATIENT
  Sex: Male

DRUGS (7)
  1. MYCOPHENOLATE MOFETIL [Suspect]
     Indication: PROPHYLAXIS AGAINST TRANSPLANT REJECTION
     Route: 065
  2. CYCLOSPORINE [Suspect]
     Indication: PROPHYLAXIS AGAINST TRANSPLANT REJECTION
     Dosage: TWO ADMINISTRATIONS
     Route: 065
  3. METHYLPREDNISOLONE [Suspect]
     Indication: PROPHYLAXIS AGAINST TRANSPLANT REJECTION
     Route: 048
  4. METHYLPREDNISOLONE [Suspect]
     Dosage: TAPERED AFTER THREE MONTHS
     Route: 048
  5. BASILIXIMAB [Suspect]
     Indication: PROPHYLAXIS AGAINST TRANSPLANT REJECTION
     Route: 065
  6. CO-TRIMOXAZOLE [Concomitant]
     Route: 065
  7. NYSTATIN [Concomitant]
     Route: 048

REACTIONS (3)
  - Viraemia [Unknown]
  - Polyomavirus-associated nephropathy [Unknown]
  - Graft loss [Unknown]
